FAERS Safety Report 6722449-4 (Version None)
Quarter: 2010Q2

REPORT INFORMATION
  Report Type: 
  Country: None (occurrence: None)
  Receive Date: 20100512
  Receipt Date: 20100510
  Transmission Date: 20101027
  Serious: Yes (Other)
  Sender: FDA-Public Use
  Company Number: PHHY2010IT14413

PATIENT
  Sex: Female

DRUGS (2)
  1. VOLTAREN [Suspect]
     Indication: SUPRAPUBIC PAIN
     Dosage: 50 MG, ONCE/SINGLE
     Route: 048
     Dates: start: 20080125, end: 20080125
  2. PARACETAMOL [Concomitant]
     Dosage: UNK

REACTIONS (4)
  - CONVERSION DISORDER [None]
  - DYSPNOEA [None]
  - EXTREMITY CONTRACTURE [None]
  - TONGUE DISORDER [None]
